FAERS Safety Report 22194081 (Version 1)
Quarter: 2023Q2

REPORT INFORMATION
  Report Type: Report from Study
  Country: US (occurrence: US)
  Receive Date: 20230411
  Receipt Date: 20230411
  Transmission Date: 20230722
  Serious: Yes (Other)
  Sender: FDA-Public Use
  Company Number: US-TEVA-2023-US-2874858

PATIENT
  Age: 18 Year
  Sex: Female

DRUGS (1)
  1. AUSTEDO [Suspect]
     Active Substance: DEUTETRABENAZINE
     Indication: Product used for unknown indication
     Route: 065
     Dates: start: 20230310, end: 202303

REACTIONS (2)
  - Suicidal ideation [Unknown]
  - Aggression [Unknown]

NARRATIVE: CASE EVENT DATE: 20230301
